FAERS Safety Report 10099361 (Version 2)
Quarter: 2015Q2

REPORT INFORMATION
  Report Type: Spontaneous
  Country: US (occurrence: US)
  Receive Date: 20140423
  Receipt Date: 20150407
  Transmission Date: 20150821
  Serious: Yes (Hospitalization, Other)
  Sender: FDA-Public Use
  Company Number: US-BAYER-2014-058278

PATIENT
  Age: 41 Year
  Sex: Female
  Weight: 58.96 kg

DRUGS (4)
  1. TRAMADOL [Concomitant]
     Active Substance: TRAMADOL
  2. YASMIN [Suspect]
     Active Substance: DROSPIRENONE\ETHINYL ESTRADIOL
     Indication: CONTRACEPTION
     Dosage: UNK
     Dates: start: 201005, end: 201008
  3. YASMIN [Suspect]
     Active Substance: DROSPIRENONE\ETHINYL ESTRADIOL
     Indication: PREMENSTRUAL SYNDROME
  4. CYMBALTA [Concomitant]
     Active Substance: DULOXETINE HYDROCHLORIDE
     Dosage: 30 MG, QD

REACTIONS (9)
  - Pulmonary embolism [Recovered/Resolved]
  - Injury [Recovered/Resolved]
  - Metrorrhagia [Not Recovered/Not Resolved]
  - Anxiety [None]
  - Thrombosis [None]
  - Deep vein thrombosis [None]
  - Depression [None]
  - Emotional distress [None]
  - Cholecystectomy [None]

NARRATIVE: CASE EVENT DATE: 2010
